FAERS Safety Report 21649901 (Version 3)
Quarter: 2022Q4

REPORT INFORMATION
  Report Type: Spontaneous
  Country: CZ (occurrence: CZ)
  Receive Date: 20221128
  Receipt Date: 20221215
  Transmission Date: 20230113
  Serious: Yes (Death, Hospitalization, Other)
  Sender: FDA-Public Use
  Company Number: CZ-ELI_LILLY_AND_COMPANY-CZ202211012137

PATIENT
  Age: 71 Year
  Sex: Female

DRUGS (4)
  1. OLANZAPINE [Suspect]
     Active Substance: OLANZAPINE
     Indication: Dementia with Lewy bodies
     Dosage: 5 MG, DAILY
     Route: 048
  2. OLANZAPINE [Suspect]
     Active Substance: OLANZAPINE
     Dosage: 7.5 MG, UNKNOWN
     Route: 048
  3. CHOLECALCIFEROL [Concomitant]
     Active Substance: CHOLECALCIFEROL
     Dosage: UNK, UNKNOWN
  4. CALTRATE [CALCIUM CARBONATE;COLECALCIFEROL] [Concomitant]
     Dosage: UNK, UNKNOWN

REACTIONS (19)
  - Dementia Alzheimer^s type [Fatal]
  - Dementia with Lewy bodies [Fatal]
  - Progressive supranuclear palsy [Fatal]
  - Angiopathy [Fatal]
  - Condition aggravated [Unknown]
  - Confusional state [Unknown]
  - Creutzfeldt-Jakob disease [Unknown]
  - Delusion [Unknown]
  - Psychotic disorder [Unknown]
  - Muscle contractions involuntary [Unknown]
  - Cerebral ischaemia [Unknown]
  - Tremor [Unknown]
  - Meningioma [Unknown]
  - Brain injury [Unknown]
  - Somnolence [Unknown]
  - Urinary tract inflammation [Unknown]
  - Dehydration [Unknown]
  - Decubitus ulcer [Unknown]
  - Unintentional use for unapproved indication [Unknown]
